FAERS Safety Report 9437338 (Version 1)
Quarter: 2013Q3

REPORT INFORMATION
  Report Type: Spontaneous
  Country: FR (occurrence: FR)
  Receive Date: 20130802
  Receipt Date: 20130802
  Transmission Date: 20140515
  Serious: Yes (Other)
  Sender: FDA-Public Use
  Company Number: FR-TEVA-422261ISR

PATIENT
  Age: 47 Year
  Sex: Female

DRUGS (13)
  1. OXALIPLATINE TEVA [Suspect]
     Indication: COLON CANCER
     Route: 042
     Dates: start: 20130312, end: 20130614
  2. TRILEPTAL [Concomitant]
  3. LAROXYL [Concomitant]
  4. EFFEXOR [Concomitant]
  5. VALIUM [Concomitant]
  6. ATARAX [Concomitant]
  7. ABILIFY [Concomitant]
  8. ZOPICLONE [Concomitant]
  9. IXPRIM [Concomitant]
  10. TARDYFERON [Concomitant]
  11. INEXIUM [Concomitant]
  12. FLUOROURACIL [Concomitant]
  13. CALCIUM FOLINATE [Concomitant]

REACTIONS (5)
  - Hypersensitivity [Recovered/Resolved]
  - Dyspnoea [Recovered/Resolved]
  - Tachypnoea [Recovered/Resolved]
  - Erythema [Recovered/Resolved]
  - Erythema [Recovered/Resolved]
